FAERS Safety Report 23569097 (Version 1)
Quarter: 2024Q1

REPORT INFORMATION
  Report Type: Report from Study
  Country: US (occurrence: US)
  Receive Date: 20240227
  Receipt Date: 20240227
  Transmission Date: 20240409
  Serious: No
  Sender: FDA-Public Use
  Company Number: US-HRARD-2021000109

PATIENT
  Age: 53 Year
  Sex: Female

DRUGS (8)
  1. METOPIRONE [Suspect]
     Active Substance: METYRAPONE
     Indication: Cushing^s syndrome
     Dosage: 500 MG IN THE MORNING, 500 MG AT NOON AND 250 MG IN THE AFTERNOON
     Route: 048
     Dates: start: 20201023
  2. METOPIRONE [Suspect]
     Active Substance: METYRAPONE
     Indication: Cushing^s syndrome
     Dosage: 3 CAPSULES BY MOUTH 3 TIMES DAILY
     Route: 048
  3. CREON CAP 12000UNT [Concomitant]
     Indication: Product used for unknown indication
  4. HYDROCORT TAB 10MG [Concomitant]
     Indication: Product used for unknown indication
  5. NAPROXEN [Concomitant]
     Active Substance: NAPROXEN
     Indication: Product used for unknown indication
  6. NIFEDIPINE CAP 10MG [Concomitant]
     Indication: Product used for unknown indication
  7. PANTOPRAZOLE SODIUM [Concomitant]
     Active Substance: PANTOPRAZOLE SODIUM
     Indication: Product used for unknown indication
  8. POT CL MICRO TAB 20MEQ CR [Concomitant]
     Indication: Product used for unknown indication

REACTIONS (1)
  - Off label use [Recovered/Resolved]

NARRATIVE: CASE EVENT DATE: 20201023
